FAERS Safety Report 24943613 (Version 2)
Quarter: 2025Q2

REPORT INFORMATION
  Report Type: Spontaneous
  Country: US (occurrence: US)
  Receive Date: 20250207
  Receipt Date: 20250421
  Transmission Date: 20250717
  Serious: Yes (Other)
  Sender: LEXICON PHARMACEUTICALS
  Company Number: US-LEX-000659

PATIENT
  Age: 73 Year
  Sex: Male

DRUGS (1)
  1. INPEFA [Suspect]
     Active Substance: SOTAGLIFLOZIN
     Indication: Chronic left ventricular failure
     Route: 048
     Dates: start: 20241224, end: 20250410

REACTIONS (4)
  - Myocardial infarction [Unknown]
  - Therapy interrupted [Unknown]
  - Product use issue [Unknown]
  - Treatment noncompliance [Unknown]

NARRATIVE: CASE EVENT DATE: 20241201
